FAERS Safety Report 8396077-1 (Version None)
Quarter: 2012Q2

REPORT INFORMATION
  Report Type: 
  Country: None (occurrence: None)
  Receive Date: 20120530
  Receipt Date: 20120517
  Transmission Date: 20120825
  Serious: Yes (Death, Hospitalization)
  Sender: FDA-Public Use
  Company Number: ES-BAYER-2012-048333

PATIENT
  Age: 94 Year
  Sex: Female

DRUGS (7)
  1. ASPIRIN [Suspect]
     Dosage: 100 MG, QD
     Route: 048
     Dates: start: 20100101, end: 20100917
  2. DIGOXIN [Interacting]
     Indication: ATRIAL FIBRILLATION
     Dosage: .12 MG, 5IW
     Route: 048
     Dates: start: 20100101, end: 20100917
  3. FUROSEMIDE [Interacting]
     Indication: CARDIAC FAILURE
     Dosage: 60 MG, QD
     Route: 048
     Dates: start: 20100101, end: 20100917
  4. BOI K [Interacting]
     Dosage: 1 DF, QD
     Route: 048
     Dates: start: 20100101, end: 20100917
  5. AMILORIDE HCL AND HYDROCHLOROTHIAZIDE [Interacting]
     Indication: HYPERTENSION
     Dosage: 1 DF, QD
     Route: 048
     Dates: start: 20100101, end: 20100917
  6. ALLOPURINOL [Interacting]
     Dosage: 100 MG, QD
     Route: 048
     Dates: start: 20100101, end: 20100917
  7. ENALAPRIL MALEATE [Interacting]
     Indication: HYPERTENSION
     Dosage: 5 MG, QD
     Route: 048
     Dates: start: 20100101, end: 20100917

REACTIONS (7)
  - HYPERPHOSPHATAEMIA [None]
  - GENERAL PHYSICAL HEALTH DETERIORATION [None]
  - HYPONATRAEMIA [None]
  - HYPERKALAEMIA [None]
  - HYPOCALCAEMIA [None]
  - RENAL FAILURE ACUTE [None]
  - TOXICITY TO VARIOUS AGENTS [None]
